FAERS Safety Report 7682983-X (Version None)
Quarter: 2011Q3

REPORT INFORMATION
  Report Type: 
  Country: None (occurrence: None)
  Receive Date: 20110815
  Receipt Date: 20110808
  Transmission Date: 20111222
  Serious: Yes (Death, Other)
  Sender: FDA-Public Use
  Company Number: FR-ROCHE-796615

PATIENT
  Age: 73 Year
  Sex: Male

DRUGS (3)
  1. PEGINTERFERON ALFA-2A [Suspect]
     Indication: HEPATITIS C
     Dosage: 135-180 MCG ONCE A WEEK
     Route: 058
  2. RIBAVIRIN [Suspect]
     Indication: HEPATITIS C
     Dosage: 1000 MG PER WEEK.
     Route: 065
  3. EPREX [Suspect]
     Route: 042

REACTIONS (2)
  - THROMBOCYTOPENIA [None]
  - EXTRADURAL HAEMATOMA [None]
